FAERS Safety Report 25400993 (Version 1)
Quarter: 2025Q2

REPORT INFORMATION
  Report Type: Spontaneous
  Country: US (occurrence: None)
  Receive Date: 20250604
  Receipt Date: 20250604
  Transmission Date: 20250717
  Serious: Yes (Hospitalization)
  Sender: FDA-CTU
  Company Number: None

PATIENT
  Age: 70 Year
  Sex: Male
  Weight: 81.9 kg

DRUGS (8)
  1. OLMESARTAN [Suspect]
     Active Substance: OLMESARTAN
     Indication: Hypertension
  2. NEXIUM [Concomitant]
     Active Substance: ESOMEPRAZOLE MAGNESIUM
  3. DEVICE [Concomitant]
     Active Substance: DEVICE
  4. BOTOX [Concomitant]
     Active Substance: ONABOTULINUMTOXINA
  5. TORDAL [Concomitant]
  6. AJOVY [Concomitant]
     Active Substance: FREMANEZUMAB-VFRM
  7. ZAPROVZET [Concomitant]
  8. FLORINOL [Concomitant]

REACTIONS (2)
  - Diarrhoea [None]
  - Weight decreased [None]

NARRATIVE: CASE EVENT DATE: 20250102
